FAERS Safety Report 23638240 (Version 1)
Quarter: 2024Q1

REPORT INFORMATION
  Report Type: Spontaneous
  Country: US (occurrence: None)
  Receive Date: 20240315
  Receipt Date: 20240315
  Transmission Date: 20240410
  Serious: Yes (Other)
  Sender: FDA-Public Use
  Company Number: None

PATIENT
  Age: 55 Year
  Sex: Female
  Weight: 69.75 kg

DRUGS (1)
  1. CARVYKTI [Suspect]
     Active Substance: CILTACABTAGENE AUTOLEUCEL
     Indication: Plasma cell myeloma
     Dates: start: 20140214

REACTIONS (5)
  - Cytokine release syndrome [None]
  - Human rhinovirus test positive [None]
  - Bell^s palsy [None]
  - Kyphosis [None]
  - Pain [None]

NARRATIVE: CASE EVENT DATE: 20240302
